FAERS Safety Report 4706898-1 (Version None)
Quarter: 2005Q2

REPORT INFORMATION
  Report Type: 
  Country: None (occurrence: None)
  Receive Date: 20050630
  Receipt Date: 20050622
  Transmission Date: 20051028
  Serious: Yes (Other)
  Sender: FDA-Public Use
  Company Number: GXKR2005IT01260

PATIENT
  Age: 54 Year
  Sex: Female

DRUGS (11)
  1. ENALAPRIL (NGX) (ENALAPRIL MALEATE) [Suspect]
     Indication: BLOOD PRESSURE
     Dosage: 2.5 MG, QD
  2. TACROLIMUS (NGX) (TACROLIMUS) [Suspect]
     Indication: IMMUNOSUPPRESSION
     Dosage: 7 NG/ML
  3. SIROLIMUS (SIROLIMUS) [Suspect]
     Indication: IMMUNOSUPPRESSION
     Dosage: 2 MG
  4. MYCOPHENOLATE SODIUM (MYCOPHENOLATE SODIUM) [Concomitant]
  5. MMF [Concomitant]
  6. PREDNISONE [Concomitant]
  7. FUROSEMIDE [Concomitant]
  8. ATENOLOL [Concomitant]
  9. FELODIPINE [Concomitant]
  10. ASPIRIN [Concomitant]
  11. ERYTHROPOIETIN (ERYTHROPOIETIN) [Concomitant]

REACTIONS (9)
  - BLOOD PRESSURE INADEQUATELY CONTROLLED [None]
  - COMPLICATIONS OF TRANSPLANTED KIDNEY [None]
  - DRUG INTERACTION [None]
  - ERYTHEMA [None]
  - HYPERSENSITIVITY [None]
  - NEPHROPATHY TOXIC [None]
  - OEDEMA [None]
  - SKIN LESION [None]
  - URTICARIA [None]
